FAERS Safety Report 9677888 (Version 2)
Quarter: 2013Q4

REPORT INFORMATION
  Report Type: Spontaneous
  Country: PL (occurrence: PL)
  Receive Date: 20131108
  Receipt Date: 20131122
  Transmission Date: 20140711
  Serious: Yes (Hospitalization, Other)
  Sender: FDA-Public Use
  Company Number: PL-RANBAXY-2013RR-75034

PATIENT
  Age: 20 Month
  Sex: Female

DRUGS (1)
  1. AMOXICILLIN/CLAVULANIC ACID [Suspect]
     Indication: OROPHARYNGEAL PAIN
     Dosage: UNK
     Route: 065
     Dates: start: 201208

REACTIONS (6)
  - Kawasaki^s disease [Recovering/Resolving]
  - Rash [Unknown]
  - Cheilitis [Unknown]
  - Skin exfoliation [Unknown]
  - Coronary artery aneurysm [Not Recovered/Not Resolved]
  - Hyponatraemia [Unknown]
